FAERS Safety Report 20604488 (Version 1)
Quarter: 2022Q1

REPORT INFORMATION
  Report Type: Report from Study
  Country: BR (occurrence: BR)
  Receive Date: 20220316
  Receipt Date: 20220316
  Transmission Date: 20220423
  Serious: Yes (Death, Hospitalization)
  Sender: FDA-Public Use
  Company Number: BR-JNJFOC-20220326448

PATIENT
  Age: 36 Year
  Sex: Male
  Weight: 73.4 kg

DRUGS (1)
  1. REMICADE [Suspect]
     Active Substance: INFLIXIMAB
     Indication: Colitis ulcerative
     Route: 042
     Dates: start: 20210826

REACTIONS (2)
  - Pneumonia [Fatal]
  - Myocardial infarction [Fatal]
